FAERS Safety Report 8942363 (Version 1)
Quarter: 2012Q4

REPORT INFORMATION
  Report Type: Spontaneous
  Country: US (occurrence: None)
  Receive Date: 20121121
  Receipt Date: 20121121
  Transmission Date: 20130627
  Serious: Yes (Other)
  Sender: FDA-Public Use
  Company Number: US-1195208

PATIENT
  Age: 59 Year
  Sex: Male

DRUGS (3)
  1. MYDFRIN [Suspect]
     Indication: PUPIL DILATION PROCEDURE
     Route: 047
  2. CYCLOPENTOLATE [Suspect]
     Indication: PUPIL DILATION PROCEDURE
     Route: 047
  3. BSS [Concomitant]

REACTIONS (5)
  - Intraocular pressure increased [None]
  - Pupillary light reflex tests abnormal [None]
  - Pupillary deformity [None]
  - Graft complication [None]
  - Post procedural complication [None]
